FAERS Safety Report 8828368 (Version 3)
Quarter: 2015Q2

REPORT INFORMATION
  Report Type: Report from Study
  Country: US (occurrence: US)
  Receive Date: 20121005
  Receipt Date: 20150401
  Transmission Date: 20150821
  Serious: Yes (Death)
  Sender: FDA-Public Use
  Company Number: US-ROCHE-1142078

PATIENT
  Sex: Male

DRUGS (7)
  1. XELODA [Suspect]
     Active Substance: CAPECITABINE
     Dosage: 6 TABLETS FOR 7 DAYS THEN OFF FOR 7 DAYS
     Route: 048
  2. XELODA [Suspect]
     Active Substance: CAPECITABINE
     Dosage: 2 TABLETS FOR 7 DAYS THEN OFF FOR 7 DAYS
     Route: 048
  3. XELODA [Suspect]
     Active Substance: CAPECITABINE
     Indication: COLON CANCER
     Dosage: 4 TABLETS FOR 7 DAYS THEN OFF FOR 7 DAYS
     Route: 048
     Dates: start: 20110520
  4. AVASTIN [Suspect]
     Active Substance: BEVACIZUMAB
     Indication: COLON CANCER
     Dosage: DATE OF DOSE 07/OCT/2011, 21/OCT/2011
     Route: 042
  5. CAMPTOSAR [Concomitant]
     Active Substance: IRINOTECAN HYDROCHLORIDE
  6. OXALIPLATIN. [Concomitant]
     Active Substance: OXALIPLATIN
  7. ERBITUX [Concomitant]
     Active Substance: CETUXIMAB

REACTIONS (1)
  - Metastatic neoplasm [Fatal]
